FAERS Safety Report 21491998 (Version 1)
Quarter: 2022Q4

REPORT INFORMATION
  Report Type: Spontaneous
  Country: US (occurrence: US)
  Receive Date: 20221021
  Receipt Date: 20221021
  Transmission Date: 20230113
  Serious: Yes (Death, Other)
  Sender: FDA-Public Use
  Company Number: US-GSK-US2022149746

PATIENT

DRUGS (1)
  1. MEPRON [Suspect]
     Active Substance: ATOVAQUONE
     Indication: Pneumonia
     Dosage: 10 ML, QD
     Route: 048
     Dates: start: 20220805

REACTIONS (2)
  - AIDS related complication [Fatal]
  - Respiratory rate decreased [Fatal]

NARRATIVE: CASE EVENT DATE: 20220101
